FAERS Safety Report 10163235 (Version 3)
Quarter: 2014Q2

REPORT INFORMATION
  Report Type: Spontaneous
  Country: CN (occurrence: CN)
  Receive Date: 20140509
  Receipt Date: 20140527
  Transmission Date: 20141212
  Serious: Yes (Other)
  Sender: FDA-Public Use
  Company Number: CN-PFIZER INC-2014127782

PATIENT
  Sex: 0

DRUGS (1)
  1. MS CONTIN [Suspect]
     Indication: PAIN
     Dosage: 900 MG, 2X/DAY
     Route: 065

REACTIONS (5)
  - Overdose [Unknown]
  - Phantom pain [Unknown]
  - Quality of life decreased [Unknown]
  - Pain [Unknown]
  - Inadequate analgesia [Unknown]
